FAERS Safety Report 9148734 (Version 1)
Quarter: 2013Q1

REPORT INFORMATION
  Report Type: Spontaneous
  Country: US (occurrence: None)
  Receive Date: 20130228
  Receipt Date: 20130228
  Transmission Date: 20140127
  Serious: No
  Sender: FDA-Public Use
  Company Number: None

PATIENT
  Age: 52 Year
  Sex: Male

DRUGS (1)
  1. LIDODERM [Suspect]
     Indication: PAIN

REACTIONS (2)
  - Product adhesion issue [None]
  - Drug ineffective [None]
